FAERS Safety Report 23368696 (Version 1)
Quarter: 2024Q1

REPORT INFORMATION
  Report Type: Spontaneous
  Country: AU (occurrence: AU)
  Receive Date: 20240105
  Receipt Date: 20240105
  Transmission Date: 20240410
  Serious: Yes (Hospitalization, Other)
  Sender: FDA-Public Use
  Company Number: AU-AstraZeneca-CH-00538663A

PATIENT

DRUGS (1)
  1. SOLIRIS [Suspect]
     Active Substance: ECULIZUMAB
     Indication: Atypical haemolytic uraemic syndrome
     Dosage: 1200 MILLIGRAM, Q2W
     Route: 042

REACTIONS (3)
  - Atypical haemolytic uraemic syndrome [Recovering/Resolving]
  - Condition aggravated [Recovering/Resolving]
  - Thrombotic microangiopathy [Recovering/Resolving]
